FAERS Safety Report 6324204-6 (Version None)
Quarter: 2009Q3

REPORT INFORMATION
  Report Type: 
  Country: None (occurrence: None)
  Receive Date: 20090824
  Receipt Date: 20090519
  Transmission Date: 20100115
  Serious: No
  Sender: FDA-Public Use
  Company Number: US-ABBOTT-09P-163-0575183-00

PATIENT
  Sex: Male
  Weight: 104.42 kg

DRUGS (3)
  1. NIASPAN [Suspect]
     Indication: CORONARY ARTERY BYPASS
     Route: 048
     Dates: start: 20071201, end: 20090401
  2. ASPIRIN [Concomitant]
     Indication: PROPHYLAXIS
     Route: 048
  3. PRAVASTATIN [Concomitant]
     Indication: CORONARY ARTERY BYPASS
     Route: 048
     Dates: start: 20071201

REACTIONS (3)
  - ANXIETY [None]
  - FLUSHING [None]
  - NERVOUSNESS [None]
